FAERS Safety Report 19873492 (Version 2)
Quarter: 2021Q4

REPORT INFORMATION
  Report Type: Spontaneous
  Country: BR (occurrence: BR)
  Receive Date: 20210922
  Receipt Date: 20211013
  Transmission Date: 20220303
  Serious: Yes (Other)
  Sender: FDA-Public Use
  Company Number: BR-TAKEDA-2020TUS049611

PATIENT
  Age: 36 Year
  Sex: Female
  Weight: 54 kg

DRUGS (6)
  1. LISDEXAMFETAMINE DIMESYLATE [Suspect]
     Active Substance: LISDEXAMFETAMINE DIMESYLATE
     Indication: Attention deficit hyperactivity disorder
     Dosage: 40 MILLIGRAM
     Route: 065
  2. LISDEXAMFETAMINE DIMESYLATE [Suspect]
     Active Substance: LISDEXAMFETAMINE DIMESYLATE
     Dosage: 50 MILLIGRAM
     Route: 065
  3. LISDEXAMFETAMINE DIMESYLATE [Suspect]
     Active Substance: LISDEXAMFETAMINE DIMESYLATE
     Dosage: 30 MILLIGRAM
     Route: 065
  4. LISDEXAMFETAMINE DIMESYLATE [Suspect]
     Active Substance: LISDEXAMFETAMINE DIMESYLATE
     Dosage: 70 MILLIGRAM, QD
     Route: 048
     Dates: start: 20210114
  5. LISDEXAMFETAMINE DIMESYLATE [Suspect]
     Active Substance: LISDEXAMFETAMINE DIMESYLATE
     Dosage: UNK
     Route: 065
  6. RITALIN [Concomitant]
     Active Substance: METHYLPHENIDATE HYDROCHLORIDE
     Indication: Attention deficit hyperactivity disorder
     Dosage: 10 MILLIGRAM, QID
     Route: 065

REACTIONS (23)
  - Haemorrhage [Unknown]
  - Performance status decreased [Unknown]
  - Drug ineffective [Unknown]
  - Impatience [Unknown]
  - Adverse drug reaction [Unknown]
  - Disturbance in attention [Unknown]
  - Feeling abnormal [Unknown]
  - Pain [Unknown]
  - Neck pain [Unknown]
  - Stereotypy [Unknown]
  - Crepitations [Unknown]
  - Apathy [Unknown]
  - Illness [Unknown]
  - Fatigue [Unknown]
  - Dysphoria [Unknown]
  - Fatigue [Unknown]
  - Nausea [Unknown]
  - Vomiting [Unknown]
  - Irritability [Unknown]
  - Insomnia [Unknown]
  - Somnolence [Unknown]
  - Counterfeit product administered [Unknown]
  - Suspected counterfeit product [Unknown]

NARRATIVE: CASE EVENT DATE: 20210115
